FAERS Safety Report 5203764-2 (Version None)
Quarter: 2007Q1

REPORT INFORMATION
  Report Type: 
  Country: None (occurrence: None)
  Receive Date: 20070110
  Receipt Date: 20070108
  Transmission Date: 20070707
  Serious: No
  Sender: FDA-Public Use
  Company Number: US-JNJFOC-20061001199

PATIENT
  Sex: Female

DRUGS (8)
  1. FLEXERIL [Suspect]
     Indication: OSTEOARTHRITIS
     Route: 048
  2. FLEXERIL [Suspect]
     Indication: FIBROMYALGIA
     Route: 048
  3. LISINOPRIL [Concomitant]
     Indication: HYPERTENSION
  4. LOPRESSOR [Concomitant]
     Indication: HYPERTENSION
     Dosage: DAILY
  5. GLUCOPHAGE [Concomitant]
     Indication: DIABETES MELLITUS
  6. PAIN MEDICATION [Concomitant]
     Indication: ARTHRALGIA
     Dosage: DAILY
  7. SOMA [Concomitant]
     Indication: MUSCLE SPASMS
  8. EFFEXOR [Concomitant]
     Indication: POLYNEUROPATHY
     Dosage: DAILY

REACTIONS (1)
  - PRESCRIBED OVERDOSE [None]
